FAERS Safety Report 6574873-0 (Version None)
Quarter: 2010Q1

REPORT INFORMATION
  Report Type: 
  Country: None (occurrence: None)
  Receive Date: 20100209
  Receipt Date: 20100126
  Transmission Date: 20100710
  Serious: Yes (Disabling)
  Sender: FDA-Public Use
  Company Number: PHHY2010TR04004

PATIENT
  Sex: Female
  Weight: 64 kg

DRUGS (1)
  1. ZOLEDRONATE T29581+ [Suspect]
     Indication: METASTASES TO BONE
     Dosage: 4 MG/28 DAYS
     Route: 042
     Dates: start: 20080122, end: 20100126

REACTIONS (1)
  - OSTEONECROSIS [None]
